FAERS Safety Report 14327790 (Version 2)
Quarter: 2018Q1

REPORT INFORMATION
  Report Type: Spontaneous
  Country: US (occurrence: US)
  Receive Date: 20171227
  Receipt Date: 20180110
  Transmission Date: 20180509
  Serious: No
  Sender: FDA-Public Use
  Company Number: US-PFIZER INC-2017546648

PATIENT
  Sex: Female

DRUGS (1)
  1. COLESTID [Suspect]
     Active Substance: COLESTIPOL HYDROCHLORIDE
     Indication: BLOOD CHOLESTEROL ABNORMAL
     Dosage: UNK

REACTIONS (1)
  - Peripheral swelling [Unknown]
